FAERS Safety Report 8796833 (Version 4)
Quarter: 2013Q3

REPORT INFORMATION
  Report Type: Report from Study
  Country: JP (occurrence: JP)
  Receive Date: 20120919
  Receipt Date: 20130910
  Transmission Date: 20140515
  Serious: Yes (Other)
  Sender: FDA-Public Use
  Company Number: JP-VERTEX PHARMACEUTICAL INC.-AE-2012-007780

PATIENT
  Age: 66 Year
  Sex: Male

DRUGS (18)
  1. VX-950 (TELAPREVIR) [Suspect]
     Indication: CHRONIC HEPATITIS C
     Dosage: 2250 MG, QD
     Route: 048
     Dates: start: 20120324, end: 20120424
  2. VX-950 (TELAPREVIR) [Suspect]
     Dosage: 1500 MG, QD
     Route: 048
     Dates: start: 20120425, end: 20120425
  3. VX-950 (TELAPREVIR) [Suspect]
     Dosage: 750 MG, QD
     Route: 048
     Dates: start: 20120426, end: 20120615
  4. REBETOL [Suspect]
     Indication: CHRONIC HEPATITIS C
     Dosage: 600 MG, QD
     Route: 048
     Dates: start: 20120324, end: 20120420
  5. REBETOL [Suspect]
     Dosage: 400 MG, QD
     Route: 048
     Dates: start: 20120421, end: 20120423
  6. REBETOL [Suspect]
     Dosage: 200 MG, QD
     Route: 048
     Dates: start: 20120424
  7. REBETOL [Suspect]
     Dosage: 200 MG, QD
     Route: 048
     Dates: start: 20120502, end: 20120629
  8. REBETOL [Suspect]
     Dosage: 400 MG, QD
     Route: 048
     Dates: start: 20120630, end: 20120803
  9. PEGINTERFERON ALFA-2B [Suspect]
     Indication: CHRONIC HEPATITIS C
     Dosage: 1.5 ?G/KG, QW
     Route: 058
     Dates: start: 20120324, end: 20120426
  10. PEGINTERFERON ALFA-2B [Suspect]
     Dosage: 0.86 ?G/KG, QW
     Route: 058
     Dates: start: 20120505, end: 20120721
  11. PEGINTERFERON ALFA-2B [Suspect]
     Dosage: 1.5 ?G/KG, QW
     Route: 058
     Dates: start: 20120728, end: 20120728
  12. PEGINTERFERON ALFA-2B [Suspect]
     Dosage: 1 ?G/KG, QW
     Route: 058
     Dates: start: 20120804
  13. LOPEMIN [Concomitant]
     Dosage: 2 DF, QD
     Route: 048
     Dates: start: 20120502
  14. ALLEGRA [Concomitant]
     Dosage: 120 MG, QD
     Route: 048
     Dates: start: 20120323
  15. ALLEGRA [Concomitant]
     Dosage: 2 DF, QD
     Route: 048
     Dates: start: 20120323
  16. RIKKUNSHITO [Concomitant]
     Dosage: 7.5 G, QD
     Route: 048
     Dates: start: 20120323
  17. TANNALBIN [Concomitant]
     Dosage: 3 MG, QD
     Route: 048
     Dates: start: 20120519, end: 20120525
  18. LAC-B [Concomitant]
     Dosage: 1.5 MG, QD
     Route: 048
     Dates: start: 20120519, end: 20120525

REACTIONS (1)
  - White blood cell count decreased [Recovered/Resolved]
